FAERS Safety Report 8789315 (Version 2)
Quarter: 2012Q4

REPORT INFORMATION
  Report Type: 
  Country: US (occurrence: None)
  Receive Date: 20120905
  Receipt Date: 20121016
  Transmission Date: 20130627
  Serious: Yes (Other)
  Sender: FDA-Public Use
  Company Number: DKLU1084107

PATIENT
  Age: 22 Year
  Sex: Male

DRUGS (5)
  1. SABRIL (TABLET) (SABRIL) (VIGABATRIN) (500 MG, TABLET) [Suspect]
     Indication: COMPLEX PARTIAL SEIZURES
     Route: 048
     Dates: start: 20120606
  2. ATIVAN (LORAZEPAM) [Concomitant]
  3. FELBATOL (FELBAMATE) [Concomitant]
  4. VALIUM (DIAZEPAM) [Concomitant]
  5. TOPAMAX (TOPIRAMATE) [Concomitant]

REACTIONS (2)
  - Eye disorder [None]
  - Toxicity to various agents [None]
